FAERS Safety Report 13265735 (Version 2)
Quarter: 2018Q2

REPORT INFORMATION
  Report Type: Report from Study
  Country: CZ (occurrence: CZ)
  Receive Date: 20170223
  Receipt Date: 20180610
  Transmission Date: 20180711
  Serious: Yes (Other)
  Sender: FDA-Public Use
  Company Number: PHHY2013CZ083618

PATIENT
  Age: 31 Year
  Sex: Male

DRUGS (3)
  1. GILENYA [Suspect]
     Active Substance: FINGOLIMOD HYDROCHLORIDE
     Indication: MULTIPLE SCLEROSIS
     Dosage: 0.5 MG, QD
     Route: 048
     Dates: start: 20130315, end: 20130417
  2. GILENYA [Suspect]
     Active Substance: FINGOLIMOD HYDROCHLORIDE
     Dosage: 0.5 MG, QD
     Route: 048
     Dates: start: 20130605, end: 20130930
  3. GILENYA [Suspect]
     Active Substance: FINGOLIMOD HYDROCHLORIDE
     Dosage: 0.5 MG, QD
     Route: 048
     Dates: start: 201310

REACTIONS (7)
  - Lymphocyte count decreased [Unknown]
  - JC polyomavirus test positive [Unknown]
  - Diplopia [Recovering/Resolving]
  - Liver disorder [Recovered/Resolved]
  - Multiple sclerosis relapse [Recovering/Resolving]
  - Monoparesis [Recovered/Resolved]
  - Liver disorder [Recovered/Resolved]

NARRATIVE: CASE EVENT DATE: 20130410
